FAERS Safety Report 11445346 (Version 8)
Quarter: 2018Q2

REPORT INFORMATION
  Report Type: Report from Study
  Country: JP (occurrence: JP)
  Receive Date: 20150902
  Receipt Date: 20180625
  Transmission Date: 20180711
  Serious: Yes (Hospitalization, Congenital Anomaly, Other)
  Sender: FDA-Public Use
  Company Number: JP-ASTELLAS-2013JP006935

PATIENT
  Age: 5 Decade
  Sex: Female
  Weight: 51 kg

DRUGS (24)
  1. ALDACTONE A [Concomitant]
     Active Substance: SPIRONOLACTONE
     Indication: LUPUS NEPHRITIS
     Dosage: UNK UNK, UNKNOWN FREQ.
     Route: 048
     Dates: end: 20090714
  2. ALFAROL [Concomitant]
     Active Substance: ALFACALCIDOL
     Indication: PROPHYLAXIS
     Dosage: 1.0 ?G, ONCE DAILY
     Route: 048
  3. GASMOTIN [Concomitant]
     Active Substance: MOSAPRIDE CITRATE
     Indication: PROPHYLAXIS
     Route: 048
  4. TACROLIMUS. [Suspect]
     Active Substance: TACROLIMUS
     Route: 048
     Dates: start: 20090127
  5. PREDONINE [Suspect]
     Active Substance: PREDNISOLONE
     Route: 048
     Dates: start: 20170612, end: 20171127
  6. AMLODIN [Concomitant]
     Active Substance: AMLODIPINE BESYLATE
     Indication: PRODUCT USED FOR UNKNOWN INDICATION
     Route: 048
  7. AMLODIN [Concomitant]
     Active Substance: AMLODIPINE BESYLATE
     Indication: LUPUS NEPHRITIS
  8. FLUMETHOLON [Concomitant]
     Active Substance: FLUOROMETHOLONE
     Indication: IRITIS
     Dosage: UNK UNK, UNKNOWN FREQ.
     Route: 047
  9. PREDONINE [Suspect]
     Active Substance: PREDNISOLONE
     Dosage: 10.0 MG, ONCE DAILY
     Route: 048
     Dates: start: 20171128
  10. LAC-B [Concomitant]
     Active Substance: BIFIDOBACTERIUM SPP.
     Indication: PROPHYLAXIS
     Route: 048
  11. ETHYL LOFLAZEPATE [Concomitant]
     Active Substance: ETHYL LOFLAZEPATE
     Indication: DEPRESSION
     Dosage: UNK UNK, UNKNOWN FREQ.
     Route: 065
  12. TAMIFLU [Concomitant]
     Active Substance: OSELTAMIVIR PHOSPHATE
     Indication: INFLUENZA
     Dosage: UNK UNK, UNKNOWN FREQ.
     Route: 048
  13. LEXAPRO [Concomitant]
     Active Substance: ESCITALOPRAM OXALATE
     Indication: DEPRESSION
     Dosage: UNK UNK, UNKNOWN FREQ.
     Route: 065
  14. PREDONINE [Suspect]
     Active Substance: PREDNISOLONE
     Route: 048
     Dates: start: 20090421, end: 20170612
  15. ULCERLMIN [Concomitant]
     Active Substance: SUCRALFATE
     Indication: PROPHYLAXIS
     Route: 048
  16. ULCERLMIN [Concomitant]
     Active Substance: SUCRALFATE
     Route: 048
  17. TACROLIMUS. [Suspect]
     Active Substance: TACROLIMUS
     Indication: LUPUS NEPHRITIS
     Route: 048
     Dates: start: 20080311, end: 20080908
  18. PREDONINE [Suspect]
     Active Substance: PREDNISOLONE
     Route: 048
     Dates: start: 20090127, end: 20090420
  19. RILMAZAFONE HYDROCHLORIDE [Concomitant]
     Active Substance: RILMAZAFONE HYDROCHLORIDE
     Indication: DEPRESSION
     Dosage: UNK UNK, UNKNOWN FREQ.
     Route: 065
  20. TACROLIMUS. [Suspect]
     Active Substance: TACROLIMUS
     Route: 048
     Dates: start: 20080909, end: 20090126
  21. PREDONINE [Suspect]
     Active Substance: PREDNISOLONE
     Indication: LUPUS NEPHRITIS
     Route: 048
     Dates: end: 20090126
  22. LASIX [Concomitant]
     Active Substance: FUROSEMIDE
     Indication: LUPUS NEPHRITIS
     Route: 048
  23. LAXOBERON [Concomitant]
     Active Substance: SODIUM PICOSULFATE
     Indication: CONSTIPATION
     Dosage: UNK UNK, UNKNOWN FREQ.
     Route: 048
     Dates: end: 20090714
  24. GASMOTIN [Concomitant]
     Active Substance: MOSAPRIDE CITRATE
     Route: 048

REACTIONS (6)
  - Arthritis bacterial [Recovering/Resolving]
  - Cellulitis [Recovered/Resolved]
  - Influenza [Recovered/Resolved]
  - Depression [Recovering/Resolving]
  - Osteonecrosis [Recovering/Resolving]
  - Iritis [Recovered/Resolved]

NARRATIVE: CASE EVENT DATE: 201101
